FAERS Safety Report 12173424 (Version 2)
Quarter: 2016Q1

REPORT INFORMATION
  Report Type: Spontaneous
  Country: US (occurrence: US)
  Receive Date: 20160311
  Receipt Date: 20160317
  Transmission Date: 20160526
  Serious: No
  Sender: FDA-Public Use
  Company Number: US-GALDERMA-US15009121

PATIENT
  Age: 79 Year
  Sex: Female

DRUGS (4)
  1. TRI-LUMA [Suspect]
     Active Substance: FLUOCINOLONE ACETONIDE\HYDROQUINONE\TRETINOIN
     Indication: PIGMENTATION DISORDER
     Route: 061
     Dates: start: 201511, end: 20151221
  2. LANCOME FACE CREAM [Concomitant]
  3. ESTEE LAUDER FACE WASH [Concomitant]
     Indication: THERAPEUTIC SKIN CARE TOPICAL
  4. COVERMARK [Concomitant]
     Route: 061

REACTIONS (3)
  - Pigmentation disorder [Not Recovered/Not Resolved]
  - Condition aggravated [Not Recovered/Not Resolved]
  - Product use issue [Not Recovered/Not Resolved]

NARRATIVE: CASE EVENT DATE: 201511
